FAERS Safety Report 5187754-4 (Version None)
Quarter: 2006Q4

REPORT INFORMATION
  Report Type: 
  Country: None (occurrence: None)
  Receive Date: 20061221
  Receipt Date: 20061212
  Transmission Date: 20070319
  Serious: Yes (Hospitalization)
  Sender: FDA-Public Use
  Company Number: FR-AVENTIS-200614401FR

PATIENT
  Age: 48 Year
  Sex: Female

DRUGS (2)
  1. TAXOTERE [Suspect]
     Indication: SQUAMOUS CELL CARCINOMA
     Route: 013
     Dates: start: 20061206, end: 20061206
  2. CISPLATIN [Suspect]
     Indication: SQUAMOUS CELL CARCINOMA
     Route: 013
     Dates: start: 20061206, end: 20061206

REACTIONS (1)
  - TONGUE OEDEMA [None]
